FAERS Safety Report 4497827-7 (Version None)
Quarter: 2004Q4

REPORT INFORMATION
  Report Type: 
  Country: None (occurrence: None)
  Receive Date: 20041110
  Receipt Date: 20041102
  Transmission Date: 20050328
  Serious: Yes (Other)
  Sender: FDA-Public Use
  Company Number: US-GLAXOSMITHKLINE-A0532207A

PATIENT
  Sex: Male

DRUGS (3)
  1. LAMICTAL [Suspect]
     Indication: BIPOLAR DISORDER
     Route: 048
  2. LIPITOR [Concomitant]
     Route: 065
  3. ANTIHYPERTENSIVE [Concomitant]
     Route: 065

REACTIONS (4)
  - HEPATOSPLENOMEGALY [None]
  - LUNG INFILTRATION [None]
  - PYREXIA [None]
  - THROMBOCYTOPENIA [None]
